FAERS Safety Report 10081245 (Version 1)
Quarter: 2014Q2

REPORT INFORMATION
  Report Type: Spontaneous
  Country: US (occurrence: US)
  Receive Date: 20140416
  Receipt Date: 20140416
  Transmission Date: 20141212
  Serious: No
  Sender: FDA-Public Use
  Company Number: US-PFIZER INC-2014102767

PATIENT
  Age: 69 Year
  Sex: Male
  Weight: 90.7 kg

DRUGS (5)
  1. LIPITOR [Suspect]
     Indication: BLOOD CHOLESTEROL INCREASED
     Dosage: 40 MG, DAILY
  2. FUROSEMIDE [Concomitant]
     Indication: HYPERTENSION
     Dosage: 40 MG, DAILY
  3. NORVASC [Concomitant]
     Indication: HYPERTENSION
     Dosage: 5 MG, DAILY
  4. LISINOPRIL [Concomitant]
     Indication: HYPERTENSION
     Dosage: 20 MG, 2X/DAY
  5. TOPROL [Concomitant]
     Indication: CARDIAC DISORDER
     Dosage: 100 MG, DAILY

REACTIONS (2)
  - Myalgia [Not Recovered/Not Resolved]
  - Ubiquinone decreased [Unknown]
